FAERS Safety Report 6698821-8 (Version None)
Quarter: 2010Q2

REPORT INFORMATION
  Report Type: 
  Country: None (occurrence: None)
  Receive Date: 20100427
  Receipt Date: 20100421
  Transmission Date: 20101027
  Serious: Yes (Other)
  Sender: FDA-Public Use
  Company Number: PHHY2010US25598

PATIENT
  Age: 63 Year
  Sex: Male

DRUGS (2)
  1. CARBIDOPA,ENTACAPONE,LEVODOPA [Suspect]
     Indication: PARKINSON'S DISEASE
     Dosage: UNK
  2. ROPINIROLE [Suspect]
     Indication: PARKINSON'S DISEASE
     Dosage: 3 MG, TID

REACTIONS (6)
  - DRUG EFFECT DECREASED [None]
  - IMPULSE-CONTROL DISORDER [None]
  - LIBIDO INCREASED [None]
  - MUSCLE RIGIDITY [None]
  - TOBACCO USER [None]
  - TREMOR [None]
